FAERS Safety Report 6106152-X (Version None)
Quarter: 2009Q1

REPORT INFORMATION
  Report Type: 
  Country: None (occurrence: None)
  Receive Date: 20090306
  Receipt Date: 20090303
  Transmission Date: 20090719
  Serious: Yes (Life-Threatening, Other)
  Sender: FDA-Public Use
  Company Number: PHHY2009GB07771

PATIENT
  Age: 56 Year
  Sex: Male

DRUGS (6)
  1. CLOZARIL [Suspect]
     Dosage: UNK
     Dates: start: 19901122, end: 20070304
  2. FUROSEMIDE [Concomitant]
     Indication: ASCITES
     Dosage: 20 MG
     Route: 048
  3. HYOSCINE HBR HYT [Concomitant]
     Indication: SALIVARY HYPERSECRETION
     Dosage: 600 MG
     Route: 048
  4. PIRENZEPINE [Concomitant]
     Indication: SALIVARY HYPERSECRETION
     Dosage: 100 MG
     Route: 048
  5. VALPROATE SODIUM [Concomitant]
     Indication: MOOD ALTERED
     Dosage: 1000 MG
     Route: 048
  6. SPIRONOLACTONE [Concomitant]
     Indication: ASCITES
     Dosage: 50 MG
     Route: 048

REACTIONS (7)
  - DIABETES MELLITUS [None]
  - HEPATIC CIRRHOSIS [None]
  - HEPATIC NEOPLASM MALIGNANT [None]
  - HEPATITIS C [None]
  - PYOTHORAX [None]
  - TERMINAL STATE [None]
  - THROMBOCYTOPENIA [None]
